FAERS Safety Report 4916263-X (Version None)
Quarter: 2006Q1

REPORT INFORMATION
  Report Type: 
  Country: None (occurrence: None)
  Receive Date: 20060217
  Receipt Date: 20050106
  Transmission Date: 20060701
  Serious: Yes (Disabling)
  Sender: FDA-Public Use
  Company Number: PR-MERCK-0501USA00644

PATIENT
  Age: 72 Year
  Sex: Male
  Weight: 91 kg

DRUGS (1)
  1. VIOXX [Suspect]
     Indication: ARTHRITIS
     Route: 048
     Dates: start: 20010101, end: 20040101

REACTIONS (9)
  - ATRIAL FIBRILLATION [None]
  - BRAIN DAMAGE [None]
  - CEREBROVASCULAR ACCIDENT [None]
  - CHRONIC OBSTRUCTIVE PULMONARY DISEASE [None]
  - INCONTINENCE [None]
  - SCHIZOPHRENIA [None]
  - SICK SINUS SYNDROME [None]
  - SYNCOPE [None]
  - VENTRICULAR TACHYCARDIA [None]
